FAERS Safety Report 4582002-8 (Version None)
Quarter: 2005Q1

REPORT INFORMATION
  Report Type: 
  Country: None (occurrence: None)
  Receive Date: 20050214
  Receipt Date: 20041130
  Transmission Date: 20050727
  Serious: Yes (Disabling, Other)
  Sender: FDA-Public Use
  Company Number: US-MERCK-0411USA04215

PATIENT
  Age: 53 Year
  Sex: Male
  Weight: 91 kg

DRUGS (8)
  1. ZETIA [Suspect]
     Indication: HYPERLIPIDAEMIA
     Route: 048
     Dates: start: 20041008, end: 20041019
  2. CRESTOR [Concomitant]
     Route: 065
  3. FOLTX [Concomitant]
     Route: 065
  4. NIASPAN [Concomitant]
     Route: 065
  5. PROTONIX [Concomitant]
     Route: 065
  6. ASPIRIN [Concomitant]
     Route: 065
  7. FISH OIL (UNSPECIFIED) [Concomitant]
     Route: 065
  8. VITAMIN B (UNSPECIFIED) [Concomitant]
     Route: 065

REACTIONS (8)
  - ARTHRALGIA [None]
  - BLOOD CHOLESTEROL INCREASED [None]
  - ECZEMA [None]
  - EOSINOPHILIA [None]
  - FATIGUE [None]
  - LOW DENSITY LIPOPROTEIN INCREASED [None]
  - MYALGIA [None]
  - PYREXIA [None]
